FAERS Safety Report 6969572-7 (Version None)
Quarter: 2010Q3

REPORT INFORMATION
  Report Type: 
  Country: None (occurrence: None)
  Receive Date: 20100907
  Receipt Date: 20100907
  Transmission Date: 20110219
  Serious: Yes (Hospitalization)
  Sender: FDA-Public Use
  Company Number: None

PATIENT
  Age: 31 Year
  Sex: Female
  Weight: 66.2252 kg

DRUGS (1)
  1. BOTOX [Suspect]
     Indication: SKIN COSMETIC PROCEDURE
     Dosage: 28 UNITS ONCE
     Dates: start: 20090721, end: 20090721

REACTIONS (6)
  - DIZZINESS [None]
  - HEADACHE [None]
  - NASAL DISORDER [None]
  - NECK PAIN [None]
  - UNEVALUABLE EVENT [None]
  - VISION BLURRED [None]
